FAERS Safety Report 5166471-0 (Version None)
Quarter: 2006Q4

REPORT INFORMATION
  Report Type: 
  Country: None (occurrence: None)
  Receive Date: 20061129
  Receipt Date: 20061114
  Transmission Date: 20070319
  Serious: Yes (Other)
  Sender: FDA-Public Use
  Company Number: PHBS2006CN17753

PATIENT

DRUGS (1)
  1. VISUDYNE [Suspect]
     Indication: CHOROIDAL NEOVASCULARISATION
     Dates: start: 20061114, end: 20061114

REACTIONS (4)
  - CYANOSIS [None]
  - NAUSEA [None]
  - PAIN [None]
  - RASH [None]
